FAERS Safety Report 11863502 (Version 1)
Quarter: 2015Q4

REPORT INFORMATION
  Report Type: Spontaneous
  Country: DE (occurrence: DE)
  Receive Date: 20151223
  Receipt Date: 20151223
  Transmission Date: 20160305
  Serious: Yes (Other)
  Sender: FDA-Public Use
  Company Number: DE-SUN PHARMACEUTICAL INDUSTRIES LTD-2015RR-108308

PATIENT

DRUGS (6)
  1. CEFUROX BASICS 250 MG TABLETTEN [Suspect]
     Active Substance: CEFUROXIME
     Indication: SINUSITIS
     Dosage: 250 MG, BID
     Route: 048
     Dates: start: 20151012, end: 20151018
  2. ASPECTON EUCAPS [Suspect]
     Active Substance: EUCALYPTUS OIL
     Indication: SINUSITIS
     Dosage: 200 MG, TID
     Route: 048
     Dates: start: 20151012, end: 20151018
  3. LEVODOP NEURAX [Suspect]
     Active Substance: CARBIDOPA\LEVODOPA
     Indication: PRODUCT USED FOR UNKNOWN INDICATION
     Dosage: 100/25 MG (LONG-TERM MEDICATION)
     Route: 048
  4. VOLTAREN [Suspect]
     Active Substance: DICLOFENAC SODIUM
     Indication: OSTEOPOROSIS
     Dosage: 1 DF, TID
     Route: 048
  5. NOVAMINSULFON [Suspect]
     Active Substance: METAMIZOLE
     Indication: PRODUCT USED FOR UNKNOWN INDICATION
     Dosage: 500 MG, TID (LONG TERM USE)
     Route: 048
  6. VALSACOR [Suspect]
     Active Substance: VALSARTAN
     Indication: PRODUCT USED FOR UNKNOWN INDICATION
     Dosage: LONG-TERM MEDICATION
     Route: 065

REACTIONS (1)
  - Anosmia [Not Recovered/Not Resolved]

NARRATIVE: CASE EVENT DATE: 20151018
